FAERS Safety Report 7767180-1 (Version None)
Quarter: 2011Q3

REPORT INFORMATION
  Report Type: 
  Country: None (occurrence: None)
  Receive Date: 20110922
  Receipt Date: 20110209
  Transmission Date: 20111222
  Serious: No
  Sender: FDA-Public Use
  Company Number: US-ASTRAZENECA-2010SE49403

PATIENT
  Age: 49 Year
  Sex: Female
  Weight: 79.4 kg

DRUGS (8)
  1. SEROQUEL [Suspect]
     Indication: BIPOLAR DISORDER
     Route: 048
     Dates: start: 20060101
  2. POTASSIUM [Concomitant]
  3. VALIUM [Concomitant]
     Indication: NERVOUSNESS
  4. SEROQUEL [Suspect]
     Dosage: 600 MG IN THE AFTERNOON
     Route: 048
     Dates: start: 20060101
  5. SEROQUEL [Suspect]
     Route: 048
     Dates: start: 20060101
  6. FLEXERIL [Concomitant]
     Indication: MUSCLE SPASMS
  7. MORPHINE SULFATE [Concomitant]
     Indication: BACK PAIN
  8. HYDROCHLOROTHIAZIDE [Concomitant]

REACTIONS (2)
  - PNEUMONIA [None]
  - NASOPHARYNGITIS [None]
